FAERS Safety Report 17284808 (Version 2)
Quarter: 2020Q2

REPORT INFORMATION
  Report Type: Report from Study
  Country: None (occurrence: US)
  Receive Date: 20200117
  Receipt Date: 20200407
  Transmission Date: 20200713
  Serious: No
  Sender: FDA-Public Use
  Company Number: US-US WORLDMEDS, LLC-USW201912-002284

PATIENT
  Age: 77 Year
  Sex: Male

DRUGS (9)
  1. QUINAPRIL. [Concomitant]
     Active Substance: QUINAPRIL
  2. XADAGO [Suspect]
     Active Substance: SAFINAMIDE MESYLATE
     Indication: PRODUCT USED FOR UNKNOWN INDICATION
     Dates: start: 2018, end: 20191121
  3. RYTARY [Suspect]
     Active Substance: CARBIDOPA\LEVODOPA
     Indication: PRODUCT USED FOR UNKNOWN INDICATION
     Dosage: 36.25MG/145MG 3 IN THE AM, 2 FOUR H LATER (UPPED TO 3), THEN 1, THEN 2 AT BEDTIME
     Dates: start: 20191105
  4. CLONIDINE. [Concomitant]
     Active Substance: CLONIDINE
     Indication: HYPERTENSION
  5. XADAGO [Suspect]
     Active Substance: SAFINAMIDE MESYLATE
     Dates: start: 2018, end: 20191121
  6. QUINAPRIL. [Concomitant]
     Active Substance: QUINAPRIL
     Indication: HYPERTENSION
  7. QUINAPRIL. [Concomitant]
     Active Substance: QUINAPRIL
  8. QUINAPRIL. [Concomitant]
     Active Substance: QUINAPRIL
  9. SINEMET [Concomitant]
     Active Substance: CARBIDOPA\LEVODOPA
     Dosage: UNKNOWN

REACTIONS (3)
  - Dysstasia [Unknown]
  - Blood pressure increased [Recovered/Resolved]
  - Tremor [Unknown]

NARRATIVE: CASE EVENT DATE: 201911
